FAERS Safety Report 4593789-2 (Version None)
Quarter: 2005Q1

REPORT INFORMATION
  Report Type: 
  Country: None (occurrence: None)
  Receive Date: 20050224
  Receipt Date: 20041229
  Transmission Date: 20050727
  Serious: No
  Sender: FDA-Public Use
  Company Number: US-BRISTOL-MYERS SQUIBB COMPANY-12813002

PATIENT
  Age: 61 Year
  Sex: Male
  Weight: 91 kg

DRUGS (2)
  1. EXCEDRIN (MIGRAINE) [Suspect]
     Indication: BACK INJURY
     Dosage: TAKEN 2-4 TIMES A DAY FOR QUITE A WHILE
     Route: 048
  2. CELEBREX [Concomitant]

REACTIONS (1)
  - STOMACH DISCOMFORT [None]
